FAERS Safety Report 10374442 (Version 1)
Quarter: 2014Q3

REPORT INFORMATION
  Report Type: Spontaneous
  Country: US (occurrence: None)
  Receive Date: 20140808
  Receipt Date: 20140808
  Transmission Date: 20150326
  Serious: No
  Sender: FDA-Public Use
  Company Number: None

PATIENT
  Age: 12 Year
  Sex: Male
  Weight: 35 kg

DRUGS (4)
  1. METHOTREXATE [Suspect]
     Active Substance: METHOTREXATE
     Dates: end: 20140725
  2. VINCRISTINE SULFATE. [Suspect]
     Active Substance: VINCRISTINE SULFATE
     Dates: end: 20140718
  3. CYTARABINE. [Suspect]
     Active Substance: CYTARABINE
     Dates: end: 20140627
  4. PEG-L-ASPARAGINASE (K-H) [Suspect]
     Active Substance: PEGASPARGASE
     Dosage: 2950 UNIT
     Dates: end: 20140630

REACTIONS (10)
  - Tumour lysis syndrome [None]
  - Hyperbilirubinaemia [None]
  - Candida infection [None]
  - Renal failure acute [None]
  - Pancytopenia [None]
  - Respiratory failure [None]
  - Bacillus infection [None]
  - Acute respiratory distress syndrome [None]
  - Sepsis [None]
  - Hypotension [None]

NARRATIVE: CASE EVENT DATE: 20140723
